FAERS Safety Report 13147392 (Version 4)
Quarter: 2017Q2

REPORT INFORMATION
  Report Type: Report from Study
  Country: JP (occurrence: JP)
  Receive Date: 20170125
  Receipt Date: 20170602
  Transmission Date: 20170830
  Serious: Yes (Death, Life-Threatening, Hospitalization)
  Sender: FDA-Public Use
  Company Number: JP-VIFOR (INTERNATIONAL) INC.-VIT-2017-00501

PATIENT
  Age: 80 Year
  Sex: Male
  Weight: 57.2 kg

DRUGS (11)
  1. CILOSTAZOL. [Concomitant]
     Active Substance: CILOSTAZOL
     Route: 048
  2. ONGLYZA [Concomitant]
     Active Substance: SAXAGLIPTIN HYDROCHLORIDE
     Route: 048
  3. VELPHORO [Suspect]
     Active Substance: FERRIC OXYHYDROXIDE
     Indication: HYPERPHOSPHATAEMIA
     Route: 048
     Dates: start: 20160701, end: 20160907
  4. ARICEPT [Concomitant]
     Active Substance: DONEPEZIL HYDROCHLORIDE
     Route: 048
  5. NESP [Concomitant]
     Active Substance: DARBEPOETIN ALFA
  6. GLUFAST [Concomitant]
     Active Substance: MITIGLINIDE
     Route: 048
  7. LANSOPRAZOLE. [Concomitant]
     Active Substance: LANSOPRAZOLE
     Route: 048
  8. WARFARIN POTASSIUM [Concomitant]
     Active Substance: WARFARIN POTASSIUM
     Route: 048
  9. RISUMIC [Concomitant]
     Active Substance: AMEZINIUM METILSULFATE
     Route: 048
  10. ALLEGRA [Concomitant]
     Active Substance: FEXOFENADINE HYDROCHLORIDE
     Route: 048
  11. PALUX [Concomitant]
     Active Substance: ALPROSTADIL

REACTIONS (14)
  - Mitral valve incompetence [Fatal]
  - Peripheral coldness [Unknown]
  - Blister [Unknown]
  - Eating disorder [Not Recovered/Not Resolved]
  - Infection [Not Recovered/Not Resolved]
  - Gangrene [Recovering/Resolving]
  - Cyanosis [Unknown]
  - Peripheral artery angioplasty [Unknown]
  - Treatment noncompliance [Unknown]
  - Limb operation [Unknown]
  - Pain in extremity [Unknown]
  - Pain [Unknown]
  - C-reactive protein increased [Not Recovered/Not Resolved]
  - White blood cell count increased [Not Recovered/Not Resolved]

NARRATIVE: CASE EVENT DATE: 2016
